FAERS Safety Report 4723722-1 (Version None)
Quarter: 2005Q3

REPORT INFORMATION
  Report Type: 
  Country: None (occurrence: None)
  Receive Date: 20050720
  Receipt Date: 20050720
  Transmission Date: 20060218
  Serious: Yes (Other)
  Sender: FDA-Public Use
  Company Number: None

PATIENT
  Sex: Female
  Weight: 52.1637 kg

DRUGS (4)
  1. OXYCONTIN [Suspect]
     Indication: BACK PAIN
     Dosage: 80 MG PO ONE BID
     Route: 048
  2. OXYCONTIN [Suspect]
     Indication: PAIN
     Dosage: 80 MG PO ONE BID
     Route: 048
  3. OXYCONTIN [Suspect]
     Indication: PARAESTHESIA
     Dosage: 80 MG PO ONE BID
     Route: 048
  4. OXYCONTIN [Suspect]
     Indication: RADICULITIS
     Dosage: 80 MG PO ONE BID
     Route: 048

REACTIONS (5)
  - FLUSHING [None]
  - HEADACHE [None]
  - NAUSEA [None]
  - THERAPEUTIC RESPONSE UNEXPECTED WITH DRUG SUBSTITUTION [None]
  - VOMITING [None]
